FAERS Safety Report 6339165-3 (Version None)
Quarter: 2009Q3

REPORT INFORMATION
  Report Type: 
  Country: None (occurrence: None)
  Receive Date: 20090903
  Receipt Date: 20090827
  Transmission Date: 20100115
  Serious: Yes (Death, Hospitalization, Other)
  Sender: FDA-Public Use
  Company Number: FR-ELI_LILLY_AND_COMPANY-FR200908005893

PATIENT
  Sex: Male

DRUGS (2)
  1. GEMZAR [Suspect]
     Indication: PANCREATIC NEOPLASM
     Dosage: FIRST CYCLE, WEEKLY (1/W)
     Route: 042
     Dates: start: 20090323, end: 20090406
  2. GEMZAR [Suspect]
     Dosage: SECOND CYCLE, WEEKLY (1/W)
     Route: 042
     Dates: start: 20090420, end: 20090427

REACTIONS (7)
  - DEATH [None]
  - DEEP VEIN THROMBOSIS [None]
  - DISSEMINATED INTRAVASCULAR COAGULATION [None]
  - GENERAL PHYSICAL CONDITION ABNORMAL [None]
  - HYPONATRAEMIA [None]
  - PULMONARY EMBOLISM [None]
  - THROMBOCYTOPENIA [None]
